FAERS Safety Report 10654542 (Version 2)
Quarter: 2014Q4

REPORT INFORMATION
  Report Type: Spontaneous
  Country: DK (occurrence: DK)
  Receive Date: 20141216
  Receipt Date: 20141216
  Transmission Date: 20150529
  Serious: Yes (Hospitalization)
  Sender: FDA-Public Use
  Company Number: DK-SA-2014SA086384

PATIENT
  Sex: Female

DRUGS (12)
  1. LYRICA [Concomitant]
     Active Substance: PREGABALIN
     Dosage: START DATE: 09-NOV, DOSE: 50 MG + 50 MG + 75 MG
  2. QUETIAPINE [Concomitant]
     Active Substance: QUETIAPINE
     Dates: start: 20130924
  3. MELATONIN [Concomitant]
     Active Substance: MELATONIN
     Dates: start: 20121008
  4. SUBOXONE [Concomitant]
     Active Substance: BUPRENORPHINE HYDROCHLORIDE\NALOXONE HYDROCHLORIDE
     Dosage: DOSE: 2 MG + 0,5 MG
     Dates: end: 20140804
  5. TOILAX [Concomitant]
  6. TOPAMAX [Concomitant]
     Active Substance: TOPIRAMATE
     Dates: start: 20131217
  7. LEMTRADA [Suspect]
     Active Substance: ALEMTUZUMAB
     Indication: RELAPSING-REMITTING MULTIPLE SCLEROSIS
     Route: 042
     Dates: start: 20140519, end: 20140524
  8. SAROTEN [Concomitant]
     Active Substance: AMITRIPTYLINE
     Dates: start: 20131217
  9. FURIX [Concomitant]
     Active Substance: FUROSEMIDE
  10. PARACETAMOL [Concomitant]
     Active Substance: ACETAMINOPHEN
  11. PANTOPRAZOLE [Concomitant]
     Active Substance: PANTOPRAZOLE SODIUM
  12. KALEORID [Concomitant]
     Active Substance: POTASSIUM CHLORIDE

REACTIONS (6)
  - Pyrexia [Recovered/Resolved]
  - Headache [Recovered/Resolved]
  - Infection [Unknown]
  - Vision blurred [Recovered/Resolved]
  - Herpes virus infection [Recovered/Resolved]
  - Pneumonia [Unknown]

NARRATIVE: CASE EVENT DATE: 20140606
